FAERS Safety Report 14483027 (Version 8)
Quarter: 2020Q1

REPORT INFORMATION
  Report Type: Report from Study
  Country: CA (occurrence: CA)
  Receive Date: 20180203
  Receipt Date: 20200121
  Transmission Date: 20200409
  Serious: Yes (Hospitalization, Other)
  Sender: FDA-Public Use
  Company Number: CA-BRISTOL-MYERS SQUIBB COMPANY-BMS-2017-099327

PATIENT
  Age: 61 Year
  Sex: Female

DRUGS (11)
  1. ABATACEPT [Suspect]
     Active Substance: ABATACEPT
     Indication: PRODUCT USED FOR UNKNOWN INDICATION
     Dosage: 125 UNK
     Route: 065
     Dates: start: 20170824
  2. PLAQUENIL [HYDROXYCHLOROQUINE PHOSPHATE] [Concomitant]
     Active Substance: HYDROXYCHLOROQUINE DIPHOSPHATE
     Indication: PRODUCT USED FOR UNKNOWN INDICATION
     Route: 065
  3. PREDNISONE. [Suspect]
     Active Substance: PREDNISONE
     Indication: PRODUCT USED FOR UNKNOWN INDICATION
     Dosage: UNK
     Route: 065
  4. ABATACEPT [Suspect]
     Active Substance: ABATACEPT
     Indication: RHEUMATOID ARTHRITIS
     Dosage: 125 MILLIGRAM, Q4WK
     Route: 058
     Dates: start: 20170824
  5. GLUCOPHAGE [Concomitant]
     Active Substance: METFORMIN HYDROCHLORIDE
     Indication: PRODUCT USED FOR UNKNOWN INDICATION
     Route: 065
  6. NEXIUM [Concomitant]
     Active Substance: ESOMEPRAZOLE MAGNESIUM
     Indication: PRODUCT USED FOR UNKNOWN INDICATION
     Route: 065
  7. MTX [METHOTREXATE SODIUM] [Concomitant]
     Active Substance: METHOTREXATE SODIUM
     Indication: PRODUCT USED FOR UNKNOWN INDICATION
     Route: 065
  8. IMURAN [Concomitant]
     Active Substance: AZATHIOPRINE
     Indication: PRODUCT USED FOR UNKNOWN INDICATION
     Route: 065
  9. ALDACTONE [POTASSIUM CANRENOATE] [Concomitant]
     Active Substance: CANRENOATE POTASSIUM
     Indication: PRODUCT USED FOR UNKNOWN INDICATION
     Route: 065
  10. FOLIC ACID. [Concomitant]
     Active Substance: FOLIC ACID
     Indication: PRODUCT USED FOR UNKNOWN INDICATION
     Route: 065
  11. LANTUS [Concomitant]
     Active Substance: INSULIN GLARGINE
     Indication: PRODUCT USED FOR UNKNOWN INDICATION
     Route: 065

REACTIONS (15)
  - Cerebrovascular accident [Recovering/Resolving]
  - Skin lesion [Unknown]
  - Pneumonia [Unknown]
  - Arthropathy [Recovering/Resolving]
  - Infection [Unknown]
  - Condition aggravated [Unknown]
  - Renal failure [Unknown]
  - Skin ulcer [Recovering/Resolving]
  - Influenza like illness [Recovering/Resolving]
  - Inappropriate schedule of product administration [Unknown]
  - Nasopharyngitis [Recovered/Resolved]
  - Impaired healing [Unknown]
  - Kidney infection [Unknown]
  - Osteoarthritis [Unknown]
  - Skin disorder [Unknown]

NARRATIVE: CASE EVENT DATE: 20171029
